FAERS Safety Report 4437742-8 (Version None)
Quarter: 2004Q3

REPORT INFORMATION
  Report Type: 
  Country: None (occurrence: None)
  Receive Date: 20040830
  Receipt Date: 20040830
  Transmission Date: 20050211
  Serious: Yes (Hospitalization)
  Sender: FDA-Public Use
  Company Number: None

PATIENT
  Sex: Male
  Weight: 70.8 kg

DRUGS (1)
  1. SULFAMETHOXAZOLE + TRIMETHOPRIM [Suspect]
     Indication: ACNE

REACTIONS (1)
  - STEVENS-JOHNSON SYNDROME [None]
